FAERS Safety Report 10443310 (Version 4)
Quarter: 2017Q4

REPORT INFORMATION
  Report Type: Report from Study
  Country: US (occurrence: US)
  Receive Date: 20140910
  Receipt Date: 20171212
  Transmission Date: 20180320
  Serious: Yes (Other)
  Sender: FDA-Public Use
  Company Number: US-ROCHE-1420374

PATIENT
  Sex: Male
  Weight: 96.7 kg

DRUGS (9)
  1. CELEXA [Concomitant]
     Active Substance: CITALOPRAM HYDROBROMIDE
     Indication: DEPRESSION
     Route: 048
  2. FLOMAX [Concomitant]
     Active Substance: TAMSULOSIN HYDROCHLORIDE
  3. TESTOSTERONE. [Concomitant]
     Active Substance: TESTOSTERONE
     Dosage: 200 MG/ML 1 CC Q 2 WEEKS
     Route: 065
  4. LANTUS [Concomitant]
     Active Substance: INSULIN GLARGINE
     Dosage: 100 UNIT/ML
     Route: 065
  5. TESTOSTERONE. [Concomitant]
     Active Substance: TESTOSTERONE
     Route: 065
  6. TESTIM [Concomitant]
     Active Substance: TESTOSTERONE
     Route: 065
  7. NUTROPIN AQ [Suspect]
     Active Substance: SOMATROPIN
     Indication: GROWTH HORMONE DEFICIENCY
     Route: 058
  8. ANDROGEL [Concomitant]
     Active Substance: TESTOSTERONE
  9. NUTROPIN AQ [Suspect]
     Active Substance: SOMATROPIN
     Indication: HYPOTHALAMO-PITUITARY DISORDER
     Dosage: 0.3/0.4MG ALTERNATING DAYS, PEN, NUSPIN
     Route: 058

REACTIONS (15)
  - Rhinorrhoea [Unknown]
  - Blood testosterone decreased [Unknown]
  - Depression [Unknown]
  - Fatigue [Unknown]
  - Dry mouth [Unknown]
  - Insulin-like growth factor increased [Unknown]
  - Gastric ulcer [Unknown]
  - Amnesia [Not Recovered/Not Resolved]
  - Glossodynia [Unknown]
  - Upper respiratory tract infection [Not Recovered/Not Resolved]
  - Prostate infection [Unknown]
  - Fatigue [Not Recovered/Not Resolved]
  - Back pain [Unknown]
  - Nasal congestion [Unknown]
  - Asthenia [Unknown]
